FAERS Safety Report 20887226 (Version 1)
Quarter: 2022Q2

REPORT INFORMATION
  Report Type: Spontaneous
  Country: US (occurrence: US)
  Receive Date: 20220528
  Receipt Date: 20220528
  Transmission Date: 20220720
  Serious: No
  Sender: FDA-Public Use
  Company Number: US-TEVA-2022-US-2034471

PATIENT

DRUGS (1)
  1. GUANFACINE [Suspect]
     Active Substance: GUANFACINE
     Route: 065

REACTIONS (6)
  - Irritability [Recovered/Resolved]
  - Psychomotor hyperactivity [Recovered/Resolved]
  - Impulsive behaviour [Recovered/Resolved]
  - Aggression [Recovered/Resolved]
  - Loss of personal independence in daily activities [Recovered/Resolved]
  - Product substitution issue [Unknown]
